FAERS Safety Report 21423815 (Version 5)
Quarter: 2023Q4

REPORT INFORMATION
  Report Type: Spontaneous
  Country: US (occurrence: US)
  Receive Date: 20221007
  Receipt Date: 20231004
  Transmission Date: 20240109
  Serious: Yes (Disabling, Other)
  Sender: FDA-Public Use
  Company Number: US-009507513-2210USA000294

PATIENT
  Age: 82 Year
  Sex: Male

DRUGS (10)
  1. KEYTRUDA [Suspect]
     Active Substance: PEMBROLIZUMAB
     Indication: Clear cell renal cell carcinoma
     Dosage: 200 MILLIGRAM, Q3W
     Route: 042
     Dates: start: 20220919
  2. LENVATINIB MESYLATE [Suspect]
     Active Substance: LENVATINIB MESYLATE
     Indication: Clear cell renal cell carcinoma
     Dosage: UNK UNK, QD
     Route: 048
     Dates: start: 20220919, end: 2023
  3. LENVATINIB MESYLATE [Suspect]
     Active Substance: LENVATINIB MESYLATE
     Dosage: 10 MILLIGRAM, QD
     Route: 048
     Dates: start: 2023
  4. DENOSUMAB [Suspect]
     Active Substance: DENOSUMAB
     Indication: Clear cell renal cell carcinoma
     Dosage: UNK
     Dates: start: 20220919, end: 20230907
  5. SIMVASTATIN [Concomitant]
     Active Substance: SIMVASTATIN
     Dosage: 20 MILLIGRAM, QD
     Route: 048
  6. VITAMINS NOS [Concomitant]
     Active Substance: VITAMINS
  7. TYLENOL [Concomitant]
     Active Substance: ACETAMINOPHEN
     Indication: Pain
     Dosage: 1 TABLET EVERY 6 HOURS AS NEEDED
     Route: 048
  8. EXTAVIA [Concomitant]
     Active Substance: INTERFERON BETA-1B
     Dosage: UNK
     Dates: end: 202307
  9. CHLORHEXIDINE [Concomitant]
     Active Substance: CHLORHEXIDINE\CHLORHEXIDINE GLUCONATE
     Dosage: 15 MILLILITER, BID
  10. CYANOCOBALAMIN [Concomitant]
     Active Substance: CYANOCOBALAMIN
     Dosage: UNK
     Route: 048

REACTIONS (21)
  - Stomatitis necrotising [Unknown]
  - Osteonecrosis of jaw [Unknown]
  - Syncope [Unknown]
  - Psoriatic arthropathy [Unknown]
  - Failure to thrive [Unknown]
  - Balance disorder [Unknown]
  - Hypothyroidism [Unknown]
  - Dermatitis bullous [Recovered/Resolved]
  - Malignant neoplasm progression [Unknown]
  - Essential hypertension [Unknown]
  - Weight decreased [Unknown]
  - Fatigue [Unknown]
  - Cough [Not Recovered/Not Resolved]
  - Anxiety [Unknown]
  - Ureterolithiasis [Unknown]
  - Calculus bladder [Unknown]
  - Hypotension [Unknown]
  - Pulmonary mass [Unknown]
  - Dizziness [Unknown]
  - Dry mouth [Unknown]
  - Spinal instability [Unknown]

NARRATIVE: CASE EVENT DATE: 20220919
